FAERS Safety Report 15201140 (Version 1)
Quarter: 2018Q3

REPORT INFORMATION
  Report Type: Spontaneous
  Country: US (occurrence: US)
  Receive Date: 20180726
  Receipt Date: 20180726
  Transmission Date: 20181010
  Serious: No
  Sender: FDA-Public Use
  Company Number: US-PFIZER INC-2018212688

PATIENT
  Age: 50 Year
  Sex: Female

DRUGS (1)
  1. MESUXIMIDE [Suspect]
     Active Substance: METHSUXIMIDE
     Dosage: UNK, FOR 6 WEEKS

REACTIONS (3)
  - Crying [Recovered/Resolved]
  - Defiant behaviour [Recovered/Resolved]
  - Personality change [Recovered/Resolved]
